FAERS Safety Report 16733180 (Version 4)
Quarter: 2022Q3

REPORT INFORMATION
  Report Type: Spontaneous
  Country: US (occurrence: None)
  Receive Date: 20190823
  Receipt Date: 20220805
  Transmission Date: 20221027
  Serious: Yes (Death, Hospitalization, Other)
  Sender: FDA-Public Use
  Company Number: 2019SF18908

PATIENT
  Age: 21184 Day
  Sex: Male
  Weight: 165.6 kg

DRUGS (74)
  1. FARXIGA [Suspect]
     Active Substance: DAPAGLIFLOZIN PROPANEDIOL
     Indication: Type 2 diabetes mellitus
     Route: 048
     Dates: start: 20150914, end: 20170816
  2. FARXIGA [Suspect]
     Active Substance: DAPAGLIFLOZIN PROPANEDIOL
     Indication: Weight decreased
     Route: 048
     Dates: start: 20150914, end: 20170816
  3. FARXIGA [Suspect]
     Active Substance: DAPAGLIFLOZIN PROPANEDIOL
     Indication: Blood pressure decreased
     Route: 048
     Dates: start: 20150914, end: 20170816
  4. FARXIGA [Suspect]
     Active Substance: DAPAGLIFLOZIN PROPANEDIOL
     Indication: Type 2 diabetes mellitus
     Route: 048
     Dates: start: 20160118
  5. FARXIGA [Suspect]
     Active Substance: DAPAGLIFLOZIN PROPANEDIOL
     Indication: Weight decreased
     Route: 048
     Dates: start: 20160118
  6. FARXIGA [Suspect]
     Active Substance: DAPAGLIFLOZIN PROPANEDIOL
     Indication: Blood pressure decreased
     Route: 048
     Dates: start: 20160118
  7. FARXIGA [Suspect]
     Active Substance: DAPAGLIFLOZIN PROPANEDIOL
     Indication: Type 2 diabetes mellitus
     Route: 048
     Dates: start: 2015, end: 2017
  8. FARXIGA [Suspect]
     Active Substance: DAPAGLIFLOZIN PROPANEDIOL
     Indication: Weight decreased
     Route: 048
     Dates: start: 2015, end: 2017
  9. FARXIGA [Suspect]
     Active Substance: DAPAGLIFLOZIN PROPANEDIOL
     Indication: Blood pressure decreased
     Route: 048
     Dates: start: 2015, end: 2017
  10. LIPITOR [Concomitant]
     Active Substance: ATORVASTATIN CALCIUM
  11. LANTUS SOLOSTAR [Concomitant]
     Active Substance: INSULIN GLARGINE
     Indication: Diabetes mellitus
     Dosage: 3.0ML UNKNOWN
     Dates: start: 2015, end: 2017
  12. VANCOMYCIN [Concomitant]
     Active Substance: VANCOMYCIN
  13. ULTRAM [Concomitant]
     Active Substance: TRAMADOL HYDROCHLORIDE
  14. IBUPROFEN [Concomitant]
     Active Substance: IBUPROFEN
  15. CYCLOBENZAPRINE [Concomitant]
     Active Substance: CYCLOBENZAPRINE
  16. FLUTICASONE [Concomitant]
     Active Substance: FLUTICASONE
  17. GABAPENTIN [Concomitant]
     Active Substance: GABAPENTIN
  18. METAXALONE [Concomitant]
     Active Substance: METAXALONE
  19. JANUMET [Concomitant]
     Active Substance: METFORMIN HYDROCHLORIDE\SITAGLIPTIN PHOSPHATE
  20. METHOCARBAMOL [Concomitant]
     Active Substance: METHOCARBAMOL
  21. VICTOZA [Concomitant]
     Active Substance: LIRAGLUTIDE
     Dosage: 18.0MG UNKNOWN
     Dates: start: 2016, end: 2017
  22. SULFAMETHOXAZOLE\TRIMETHOPRIM [Concomitant]
     Active Substance: SULFAMETHOXAZOLE\TRIMETHOPRIM
  23. MOVANTIK [Concomitant]
     Active Substance: NALOXEGOL OXALATE
  24. LISINOPRIL [Concomitant]
     Active Substance: LISINOPRIL
     Indication: Hypertension
     Dosage: 5.0MG UNKNOWN
     Dates: start: 2016
  25. STELARA [Concomitant]
     Active Substance: USTEKINUMAB
  26. CIPROFLOXACIN [Concomitant]
     Active Substance: CIPROFLOXACIN
  27. HYDROCODONE [Concomitant]
     Active Substance: HYDROCODONE
  28. BENZONATATE [Concomitant]
     Active Substance: BENZONATATE
  29. CLOBETASOL [Concomitant]
     Active Substance: CLOBETASOL
  30. METRONIDAZOLE [Concomitant]
     Active Substance: METRONIDAZOLE
  31. INSULIN NOS [Concomitant]
     Active Substance: INSULIN NOS
  32. FAMOTIDINE [Concomitant]
     Active Substance: FAMOTIDINE
  33. NOREPINEPHRINE [Concomitant]
     Active Substance: NOREPINEPHRINE
  34. SODIUM CHLORIDE [Concomitant]
     Active Substance: SODIUM CHLORIDE
  35. GLUCAGON [Concomitant]
     Active Substance: GLUCAGON
  36. ONDANSETRON HCL [Concomitant]
     Active Substance: ONDANSETRON HYDROCHLORIDE
  37. HYDROMORPHONE HCL [Concomitant]
     Active Substance: HYDROMORPHONE HYDROCHLORIDE
  38. POTASSIUM [Concomitant]
     Active Substance: POTASSIUM
  39. MIDAZOLAM HYDROCHLORIDE [Concomitant]
     Active Substance: MIDAZOLAM HYDROCHLORIDE
  40. LIDOCAINE [Concomitant]
     Active Substance: LIDOCAINE
  41. CLINDAMYCIN [Concomitant]
     Active Substance: CLINDAMYCIN
  42. SODIUM HYPOCHLORITE [Concomitant]
     Active Substance: SODIUM HYPOCHLORITE
  43. SODIUM BICARBONATE [Concomitant]
     Active Substance: SODIUM BICARBONATE
  44. PIPERACILLIN SOD/TAZOBACTAM SOD [Concomitant]
  45. INSULIN DETEMIR [Concomitant]
     Active Substance: INSULIN DETEMIR
  46. PROPOFOL [Concomitant]
     Active Substance: PROPOFOL
  47. FENTANYL [Concomitant]
     Active Substance: FENTANYL
  48. VECURONIUM BROMIDE [Concomitant]
     Active Substance: VECURONIUM BROMIDE
  49. PHENYLEPHRINE HCL [Concomitant]
     Active Substance: PHENYLEPHRINE HYDROCHLORIDE
  50. IRON SUCCINYL-PROTEIN COMPLEX/CALCIUM FOLINATE [Concomitant]
  51. IOPAMIDOL [Concomitant]
     Active Substance: IOPAMIDOL
  52. DULERA [Concomitant]
     Active Substance: FORMOTEROL FUMARATE DIHYDRATE\MOMETASONE FUROATE
  53. VASOPRESSIN [Concomitant]
     Active Substance: VASOPRESSIN
  54. CALCIUM [Concomitant]
     Active Substance: CALCIUM
  55. MAGNESIUM [Concomitant]
     Active Substance: MAGNESIUM
  56. HEPARIN [Concomitant]
     Active Substance: HEPARIN SODIUM
  57. PHENOL [Concomitant]
     Active Substance: PHENOL
     Route: 065
     Dates: start: 20160627
  58. METFORMIN [Concomitant]
     Active Substance: METFORMIN HYDROCHLORIDE
     Dosage: 1000.0MG UNKNOWN
     Route: 065
     Dates: start: 2015, end: 2017
  59. ACCU-CHEK [Concomitant]
  60. GLYBURIDE [Concomitant]
     Active Substance: GLYBURIDE
  61. HUMIRA [Concomitant]
     Active Substance: ADALIMUMAB
  62. ECONAZOLE NITRATE [Concomitant]
     Active Substance: ECONAZOLE NITRATE
  63. AZITHROMYCIN [Concomitant]
     Active Substance: AZITHROMYCIN
  64. EMBARACE [Concomitant]
  65. COSENTYX [Concomitant]
     Active Substance: SECUKINUMAB
  66. MUPIROCIN [Concomitant]
     Active Substance: MUPIROCIN
  67. ASPIRIN [Concomitant]
     Active Substance: ASPIRIN
  68. PROAIR HFA [Concomitant]
     Active Substance: ALBUTEROL SULFATE
  69. CEPHALEXIN [Concomitant]
     Active Substance: CEPHALEXIN
  70. HUMALOG [Concomitant]
     Active Substance: INSULIN LISPRO
     Indication: Diabetes mellitus
     Dosage: 100U/ML
     Dates: start: 2015, end: 2017
  71. APIDRA PEN [Concomitant]
     Indication: Diabetes mellitus
     Dosage: 3.0ML UNKNOWN
     Dates: start: 2015, end: 2017
  72. METFORMIN [Concomitant]
     Active Substance: METFORMIN HYDROCHLORIDE
     Indication: Diabetes mellitus
     Dosage: 1000.0MG UNKNOWN
     Dates: start: 2015, end: 2017
  73. ATORVASTATIN [Concomitant]
     Active Substance: ATORVASTATIN
     Indication: Blood cholesterol
     Dosage: 20.0MG UNKNOWN
     Dates: start: 2016
  74. LORATADINE [Concomitant]
     Active Substance: LORATADINE
     Indication: Hypersensitivity
     Dosage: 10.0MG UNKNOWN
     Dates: start: 2016

REACTIONS (12)
  - Multiple organ dysfunction syndrome [Fatal]
  - Cardiac arrest [Fatal]
  - Cardio-respiratory arrest [Fatal]
  - Fournier^s gangrene [Fatal]
  - Septic shock [Fatal]
  - Sepsis [Unknown]
  - Necrotising soft tissue infection [Unknown]
  - Scrotal abscess [Unknown]
  - Ketoacidosis [Unknown]
  - Necrotising fasciitis [Unknown]
  - Anal abscess [Unknown]
  - Genital abscess [Unknown]

NARRATIVE: CASE EVENT DATE: 20170816
